FAERS Safety Report 7498981-5 (Version None)
Quarter: 2011Q2

REPORT INFORMATION
  Report Type: 
  Country: None (occurrence: None)
  Receive Date: 20110524
  Receipt Date: 20090323
  Transmission Date: 20111010
  Serious: Yes (Hospitalization, Other)
  Sender: FDA-Public Use
  Company Number: US-BAYER-201039596NA

PATIENT
  Age: 51 Year
  Sex: Female
  Weight: 112 kg

DRUGS (56)
  1. TRANSDERMAL-NTG [Concomitant]
     Dosage: 14 MG, QD
     Dates: start: 20060930
  2. NEO-SYNEPHRINE 12 HOUR EXTRA MOISTURIZING SPRAY [Concomitant]
  3. CLOPIDOGREL [Concomitant]
     Dosage: 75 MG, QD
     Dates: start: 20060929
  4. HEPARIN [Concomitant]
     Dosage: 3000 U, UNK
     Dates: start: 20061001
  5. HEPARIN [Concomitant]
     Dosage: 5000 U, PRIME
     Route: 042
     Dates: start: 20061001
  6. APROTININ [Concomitant]
     Dosage: 50 ML/HOUR, UNK
     Route: 042
     Dates: start: 20061001
  7. PROPOFOL [Concomitant]
     Dosage: 100MG/100ML, UNK
     Route: 042
     Dates: start: 20061001
  8. NEO-SYNEPHRINOL [Concomitant]
     Dosage: 50, UNK
     Route: 042
     Dates: start: 20061001
  9. TRASYLOL [Suspect]
     Dosage: 50 ML/HR
  10. ATENOLOL [Concomitant]
     Dosage: 50 MG, BID
     Dates: start: 20060930
  11. LIPITOR [Concomitant]
     Dosage: 10 MG, QD
  12. HEPARIN [Concomitant]
     Dosage: 20000 U, UNK
     Route: 042
     Dates: start: 20061001
  13. NORMOSOL [Concomitant]
     Dosage: 1650 CC, UNK
     Route: 042
     Dates: start: 20061001
  14. MANNITOL [Concomitant]
     Dosage: 100 GM, UNK
     Route: 042
     Dates: start: 20061001
  15. MIDAZOLAM HCL [Concomitant]
     Dosage: 5ML, UNK
     Route: 042
     Dates: start: 20061001
  16. PROTONIX [Concomitant]
     Dosage: 40 MG, QD
     Dates: start: 20060930
  17. METFORMIN HCL [Concomitant]
     Dosage: 500 MG, BID
  18. CALCIUM CHLORIDE [Concomitant]
     Dosage: 500 MG, UNK
     Route: 042
     Dates: start: 20061001
  19. CARDIOPLEGIA [Concomitant]
     Dosage: 700 CC, UNK
     Route: 042
     Dates: start: 20061001
  20. CARDENE [Concomitant]
     Dosage: 10, UNK
     Route: 042
     Dates: start: 20061001
  21. AMIODARONE HCL [Concomitant]
     Dosage: 450MG/15ML, UNK
     Route: 042
     Dates: start: 20061001
  22. FENTANYL [Concomitant]
     Dosage: 400, UNK
     Route: 042
     Dates: start: 20061001
  23. PANCURONIUM BROMIDE [Concomitant]
     Dosage: 17, UNK
     Route: 042
     Dates: start: 20061001
  24. ATORVASTATIN [Concomitant]
     Dosage: 40 MG, QD
     Dates: start: 20060926
  25. AVAPRO [Concomitant]
     Dosage: 150 MG, QD/HS
     Route: 048
     Dates: start: 20060930
  26. INSULIN [Concomitant]
     Dosage: 50, UNK
     Route: 042
     Dates: start: 20061001
  27. DROPERIDOL [Concomitant]
     Dosage: 1.25 MG, Q3HR/PRN
     Route: 042
     Dates: start: 20060926
  28. PANTO [PANTOPRAZOLE SODIUM] [Concomitant]
     Dosage: 40 MG, QD
     Route: 048
     Dates: start: 20060926
  29. INTEGRILIN [Concomitant]
     Dosage: 0.75MG/ML-18MG
     Dates: start: 20060926
  30. METOPROLOL SUCCINATE [Concomitant]
     Dosage: 50 MG, UNK
  31. LIDOCAINE [Concomitant]
     Dosage: 100 MG, UNK
     Route: 042
     Dates: start: 20061001
  32. EPTIFIBATIDE [Concomitant]
     Dosage: 75 MG/100ML
     Route: 042
     Dates: start: 20060926
  33. NITROGLYCERIN [Concomitant]
     Dosage: UNK
     Route: 042
     Dates: start: 20060926
  34. HEPARIN [Concomitant]
     Dosage: UNK
     Route: 042
     Dates: start: 20060926
  35. MAGNESIUM SULFATE [Concomitant]
     Dosage: 2 GM, UNK
     Route: 042
     Dates: start: 20061001
  36. CALCIUM CHLORIDE [Concomitant]
     Dosage: 200 MG, UNK
     Route: 042
     Dates: start: 20061001
  37. NOVOLIN [INSULIN] [Concomitant]
     Dosage: 60 U, UNK
     Route: 042
     Dates: start: 20061001
  38. EPHEDRINE [Concomitant]
     Dosage: 10, UNK
     Route: 042
     Dates: start: 20061001
  39. TRASYLOL [Suspect]
     Dosage: 400 ML/HR
     Route: 042
     Dates: start: 20061001, end: 20061001
  40. NITROGLYCERIN [Concomitant]
     Dosage: 65, UNK
     Route: 042
     Dates: start: 20061001
  41. INSULIN [Concomitant]
     Dosage: UNK
     Route: 058
     Dates: start: 20060926
  42. APROTININ [Concomitant]
     Dosage: 400 ML, UNK
     Route: 042
     Dates: start: 20061001
  43. NORMAL SALINE [Concomitant]
     Dosage: 2500 CC, UNK
     Route: 042
     Dates: start: 20061001
  44. HYDROMORPHONE HCL [Concomitant]
     Dosage: 2 MG, UNK
     Route: 042
     Dates: start: 20061001
  45. AMINOCAPROIC ACID [Concomitant]
     Dosage: 5MG/20ML, UNK
     Route: 042
     Dates: start: 20061001
  46. MIDAZOLAM HCL [Concomitant]
     Dosage: 1 MG/ML, UNK
     Route: 042
     Dates: start: 20061001
  47. PROTAMINE SULFATE [Concomitant]
     Dosage: 150 MG, UNK
     Route: 042
     Dates: start: 20061001
  48. ASPIRIN [Concomitant]
     Dosage: 325 MG, QD
     Dates: start: 20060930
  49. HEPARIN [Concomitant]
     Dosage: 7000 U, UNK
     Route: 042
     Dates: start: 20060929
  50. ALBUMIN (HUMAN) [Concomitant]
     Dosage: 200 CC, UNK
     Route: 042
  51. TRASYLOL [Suspect]
     Indication: CORONARY ARTERY BYPASS
     Dosage: 200 ML/HR PRIME
     Route: 042
     Dates: start: 20061001, end: 20061001
  52. XANAX [Concomitant]
  53. PLAVIX [Concomitant]
     Dosage: 300 MG, QD
     Route: 048
     Dates: start: 20060929
  54. SODIUM CHLORIDE [Concomitant]
     Dosage: 100 MBQ, UNK
     Route: 042
     Dates: start: 20061001
  55. ANCEF [Concomitant]
     Dosage: 2 GM, UNK
     Route: 042
     Dates: start: 20061001
  56. EPINEPHRINE [Concomitant]
     Dosage: 10, UNK
     Route: 042
     Dates: start: 20061001

REACTIONS (18)
  - MULTI-ORGAN FAILURE [None]
  - STRESS [None]
  - DEPRESSION [None]
  - RENAL IMPAIRMENT [None]
  - NEPHROGENIC ANAEMIA [None]
  - PAIN [None]
  - HYPOTHYROIDISM [None]
  - DEEP VEIN THROMBOSIS [None]
  - RENAL INJURY [None]
  - ATRIAL FIBRILLATION [None]
  - EMOTIONAL DISTRESS [None]
  - FEAR [None]
  - INJURY [None]
  - ANXIETY [None]
  - UNEVALUABLE EVENT [None]
  - RENAL FAILURE ACUTE [None]
  - RENAL FAILURE [None]
  - ILEUS [None]
